FAERS Safety Report 7766818-2 (Version None)
Quarter: 2011Q3

REPORT INFORMATION
  Report Type: 
  Country: None (occurrence: None)
  Receive Date: 20110922
  Receipt Date: 20110112
  Transmission Date: 20111222
  Serious: No
  Sender: FDA-Public Use
  Company Number: US-ASTRAZENECA-2011SE02087

PATIENT
  Age: 36 Year
  Sex: Female
  Weight: 83.5 kg

DRUGS (5)
  1. SEROQUEL [Suspect]
     Route: 048
     Dates: start: 20070101, end: 20110101
  2. LAMICTAL [Concomitant]
  3. SEROQUEL [Suspect]
     Indication: BIPOLAR DISORDER
     Route: 048
     Dates: start: 20070101
  4. PROSEGAM [Concomitant]
  5. KLONOPIN [Concomitant]

REACTIONS (3)
  - NIGHTMARE [None]
  - DRUG DOSE OMISSION [None]
  - INSOMNIA [None]
